FAERS Safety Report 7682671-X (Version None)
Quarter: 2011Q3

REPORT INFORMATION
  Report Type: 
  Country: None (occurrence: None)
  Receive Date: 20110815
  Receipt Date: 20110810
  Transmission Date: 20111222
  Serious: Yes (Hospitalization, Other)
  Sender: FDA-Public Use
  Company Number: US-SHIRE-ALL1-2011-02686

PATIENT
  Sex: Female
  Weight: 81.633 kg

DRUGS (5)
  1. LOVASTATIN [Concomitant]
     Indication: BLOOD CHOLESTEROL INCREASED
     Dosage: UNK, 1X/DAY:QD
     Route: 048
     Dates: end: 20100101
  2. METFORMIN HCL [Concomitant]
     Indication: DIABETES MELLITUS
     Dosage: UNK, 1X/DAY:QD
     Route: 048
     Dates: end: 20100101
  3. LIALDA [Suspect]
     Indication: COLITIS ULCERATIVE
     Dosage: 1.2 G, 1X/DAY:QD
     Route: 048
     Dates: start: 20090101, end: 20100101
  4. LOTREL [Concomitant]
     Indication: HYPERTENSION
     Dosage: UNK, 1X/DAY:QD
     Route: 048
     Dates: end: 20100101
  5. ACTOS [Concomitant]
     Indication: DIABETES MELLITUS
     Dosage: UNK, 1X/DAY:QD
     Route: 048
     Dates: end: 20100101

REACTIONS (3)
  - OSTEOPOROSIS [None]
  - RECTAL CANCER [None]
  - ABNORMAL LOSS OF WEIGHT [None]
